FAERS Safety Report 7018922-4 (Version None)
Quarter: 2010Q3

REPORT INFORMATION
  Report Type: 
  Country: None (occurrence: None)
  Receive Date: 20100928
  Receipt Date: 20100914
  Transmission Date: 20110219
  Serious: Yes (Hospitalization)
  Sender: FDA-Public Use
  Company Number: DE-MYLANLABS-2010S1016772

PATIENT
  Age: 48 Year
  Sex: Female

DRUGS (3)
  1. LORAZEPAM [Suspect]
     Indication: DEPRESSION
     Route: 048
  2. VENLAFAXINE [Concomitant]
     Indication: DEPRESSION
     Route: 048
  3. PIPAMPERONE [Concomitant]
     Indication: DEPRESSION
     Route: 048

REACTIONS (2)
  - DRUG TOXICITY [None]
  - INTENTIONAL OVERDOSE [None]
